FAERS Safety Report 6266838-3 (Version None)
Quarter: 2009Q3

REPORT INFORMATION
  Report Type: 
  Country: None (occurrence: None)
  Receive Date: 20090714
  Receipt Date: 20090706
  Transmission Date: 20100115
  Serious: Yes (Hospitalization)
  Sender: FDA-Public Use
  Company Number: JP-JNJFOC-20090701708

PATIENT
  Age: 67 Year
  Sex: Male

DRUGS (3)
  1. RISPERDAL [Suspect]
     Indication: RESTLESSNESS
     Route: 048
  2. TEGRETOL [Suspect]
     Indication: RESTLESSNESS
     Route: 048
  3. PAXIL [Suspect]
     Indication: RESTLESSNESS
     Route: 048

REACTIONS (1)
  - STEVENS-JOHNSON SYNDROME [None]
